FAERS Safety Report 4979213-6 (Version None)
Quarter: 2006Q2

REPORT INFORMATION
  Report Type: 
  Country: None (occurrence: None)
  Receive Date: 20060421
  Receipt Date: 20060414
  Transmission Date: 20061013
  Serious: Yes (Other)
  Sender: FDA-Public Use
  Company Number: 2006AP01761

PATIENT
  Age: 77 Year
  Sex: Male

DRUGS (2)
  1. CASODEX [Suspect]
     Indication: PROSTATE CANCER
     Route: 048
     Dates: start: 20060407, end: 20060413
  2. LEUPLIN [Suspect]
     Indication: PROSTATE CANCER
     Dates: start: 20060406

REACTIONS (1)
  - DRUG ERUPTION [None]
